FAERS Safety Report 13381963 (Version 1)
Quarter: 2017Q1

REPORT INFORMATION
  Report Type: Spontaneous
  Country: US (occurrence: US)
  Receive Date: 20170329
  Receipt Date: 20170329
  Transmission Date: 20170429
  Serious: Yes (Hospitalization)
  Sender: FDA-Public Use
  Company Number: None

PATIENT
  Age: 74 Year
  Sex: Male
  Weight: 69.6 kg

DRUGS (1)
  1. CISPLATIN. [Suspect]
     Active Substance: CISPLATIN
     Dates: end: 20170124

REACTIONS (7)
  - Oropharyngeal pain [None]
  - Oral pain [None]
  - Asthenia [None]
  - Dysphagia [None]
  - Malnutrition [None]
  - Pyrexia [None]
  - Hypophagia [None]

NARRATIVE: CASE EVENT DATE: 20170130
